FAERS Safety Report 23191756 (Version 2)
Quarter: 2024Q1

REPORT INFORMATION
  Report Type: Other
  Country: US (occurrence: US)
  Receive Date: 20231116
  Receipt Date: 20240313
  Transmission Date: 20240410
  Serious: No
  Sender: FDA-Public Use
  Company Number: US-TRAVERE-2023TVT00635

PATIENT
  Age: 36 Year
  Sex: Male

DRUGS (1)
  1. FILSPARI [Suspect]
     Active Substance: SPARSENTAN
     Indication: IgA nephropathy
     Route: 048
     Dates: start: 20231012

REACTIONS (3)
  - Rash [Unknown]
  - Joint swelling [Unknown]
  - Liver function test increased [Unknown]

NARRATIVE: CASE EVENT DATE: 20231012
